FAERS Safety Report 16804142 (Version 1)
Quarter: 2019Q3

REPORT INFORMATION
  Report Type: Spontaneous
  Country: NL (occurrence: NL)
  Receive Date: 20190913
  Receipt Date: 20190913
  Transmission Date: 20191005
  Serious: No
  Sender: FDA-Public Use
  Company Number: NL-009507513-1909NLD002296

PATIENT
  Sex: Female

DRUGS (1)
  1. DIPROLENE [Suspect]
     Active Substance: BETAMETHASONE DIPROPIONATE
     Indication: ORAL PAIN
     Dosage: VERY LIGHTLY ON THE AFFECTED SPOTS IN MOUTH A COUPLE TIMES PER WEEK
     Route: 002

REACTIONS (4)
  - Off label use [Unknown]
  - Therapeutic product effective for unapproved indication [Unknown]
  - No adverse event [Unknown]
  - Incorrect route of product administration [Unknown]
